FAERS Safety Report 21625061 (Version 1)
Quarter: 2022Q4

REPORT INFORMATION
  Report Type: Spontaneous
  Country: JP (occurrence: JP)
  Receive Date: 20221122
  Receipt Date: 20221122
  Transmission Date: 20230112
  Serious: Yes (Other)
  Sender: FDA-Public Use
  Company Number: JP-SUN PHARMACEUTICAL INDUSTRIES LTD-2022R1-362496

PATIENT
  Age: 27 Year
  Sex: Female

DRUGS (5)
  1. RITODRINE [Suspect]
     Active Substance: RITODRINE
     Indication: Threatened labour
     Dosage: 15 MILLIGRAM, DAILY
     Route: 048
  2. RITODRINE [Suspect]
     Active Substance: RITODRINE
     Dosage: 20 MILLIGRAM, DAILY
     Route: 048
  3. FAMOTIDINE [Suspect]
     Active Substance: FAMOTIDINE
     Indication: Antiallergic therapy
     Dosage: UNK
     Route: 065
  4. PREDNISOLONE [Suspect]
     Active Substance: PREDNISOLONE
     Indication: Steroid therapy
     Dosage: 30 MILLIGRAM (0.5 MG/KG/DAY)
     Route: 065
  5. GASLON [Suspect]
     Active Substance: IRSOGLADINE MALEATE
     Indication: Antiallergic therapy
     Dosage: UNK
     Route: 065

REACTIONS (2)
  - Exposure during pregnancy [Unknown]
  - Drug eruption [Recovered/Resolved]
